FAERS Safety Report 6418002-2 (Version None)
Quarter: 2009Q4

REPORT INFORMATION
  Report Type: 
  Country: None (occurrence: None)
  Receive Date: 20091028
  Receipt Date: 20091016
  Transmission Date: 20100525
  Serious: Yes (Hospitalization)
  Sender: FDA-Public Use
  Company Number: GB-BRISTOL-MYERS SQUIBB COMPANY-14827372

PATIENT
  Age: 76 Year
  Sex: Female

DRUGS (4)
  1. CETUXIMAB [Suspect]
     Indication: OESOPHAGEAL CARCINOMA
     Route: 042
     Dates: start: 20090911
  2. CISPLATIN [Suspect]
     Indication: OESOPHAGEAL CARCINOMA
     Route: 042
     Dates: start: 20090828
  3. CAPECITABINE [Suspect]
     Indication: OESOPHAGEAL CARCINOMA
     Dosage: TABS
     Route: 048
     Dates: start: 20090828, end: 20090925
  4. RADIOTHERAPY [Suspect]
     Indication: OESOPHAGEAL CARCINOMA

REACTIONS (1)
  - SMALL INTESTINAL OBSTRUCTION [None]
